FAERS Safety Report 6939284-4 (Version None)
Quarter: 2010Q3

REPORT INFORMATION
  Report Type: 
  Country: None (occurrence: None)
  Receive Date: 20100824
  Receipt Date: 20100817
  Transmission Date: 20110219
  Serious: Yes (Other)
  Sender: FDA-Public Use
  Company Number: US-TYCO HEALTHCARE/MALLINCKRODT-T201001818

PATIENT
  Sex: Female
  Weight: 55.782 kg

DRUGS (1)
  1. OPTIRAY 350 [Suspect]
     Indication: COMPUTERISED TOMOGRAM ABDOMEN
     Dosage: 100 ML, SINGLE
     Route: 042
     Dates: start: 20090702, end: 20090702

REACTIONS (4)
  - CHILLS [None]
  - NASAL CONGESTION [None]
  - OCULAR HYPERAEMIA [None]
  - URTICARIA [None]
